FAERS Safety Report 18575005 (Version 2)
Quarter: 2020Q4

REPORT INFORMATION
  Report Type: Spontaneous
  Country: CA (occurrence: CA)
  Receive Date: 20201203
  Receipt Date: 20201208
  Transmission Date: 20210114
  Serious: Yes (Death, Other)
  Sender: FDA-Public Use
  Company Number: CA-PFIZER INC-2020412949

PATIENT
  Age: 88 Year
  Sex: Male

DRUGS (2)
  1. VYNDAQEL [Suspect]
     Active Substance: TAFAMIDIS MEGLUMINE
     Indication: CARDIAC AMYLOIDOSIS
     Dosage: 80 MG, DAILY
     Route: 048
     Dates: start: 20190610, end: 2020
  2. OXYGEN. [Concomitant]
     Active Substance: OXYGEN
     Dosage: UNK, AS NEEDED

REACTIONS (13)
  - Blood urea increased [Unknown]
  - Blood creatinine increased [Unknown]
  - Cognitive disorder [Unknown]
  - Death [Fatal]
  - Hypersomnia [Unknown]
  - Blood potassium decreased [Unknown]
  - Blood uric acid increased [Unknown]
  - Drug ineffective [Unknown]
  - Asthenia [Unknown]
  - Nasal cavity cancer [Unknown]
  - Cardiac failure chronic [Unknown]
  - Glomerular filtration rate decreased [Unknown]
  - Blood sodium decreased [Unknown]

NARRATIVE: CASE EVENT DATE: 202002
